FAERS Safety Report 4675781-2 (Version None)
Quarter: 2005Q2

REPORT INFORMATION
  Report Type: 
  Country: None (occurrence: None)
  Receive Date: 20050525
  Receipt Date: 20050511
  Transmission Date: 20051028
  Serious: Yes (Life-Threatening)
  Sender: FDA-Public Use
  Company Number: 2005EN000011

PATIENT
  Age: 7 Year
  Sex: Male

DRUGS (5)
  1. ABELCET [Suspect]
     Indication: FEBRILE NEUTROPENIA
     Dosage: 500 MG; XQ; IV
     Route: 042
     Dates: start: 20050403, end: 20050403
  2. SALBUTAMOL [Concomitant]
  3. SLOW-K [Concomitant]
  4. FRUSEMIDE [Concomitant]
  5. CLARITHROMYCIN [Concomitant]

REACTIONS (3)
  - ATRIAL FIBRILLATION [None]
  - CHILLS [None]
  - OXYGEN SATURATION DECREASED [None]
